FAERS Safety Report 17228353 (Version 1)
Quarter: 2019Q4

REPORT INFORMATION
  Report Type: Spontaneous
  Country: US (occurrence: US)
  Receive Date: 20191210
  Receipt Date: 20191210
  Transmission Date: 20200122
  Serious: Yes (Life-Threatening, Hospitalization)
  Sender: FDA-Public Use
  Company Number: None

PATIENT
  Age: 19 Year
  Sex: Female
  Weight: 95.25 kg

DRUGS (2)
  1. LEVONORGESTREL-ETHYINYL ESTRADIOL (SRONYX) 0.1-20 [Suspect]
     Active Substance: ETHINYL ESTRADIOL\LEVONORGESTREL
     Indication: POLYCYSTIC OVARIES
     Route: 048
     Dates: start: 20191107, end: 201912
  2. TOPIRAMATE. [Concomitant]
     Active Substance: TOPIRAMATE

REACTIONS (2)
  - Transverse sinus thrombosis [None]
  - Superior sagittal sinus thrombosis [None]
